FAERS Safety Report 4571627-1 (Version None)
Quarter: 2005Q1

REPORT INFORMATION
  Report Type: 
  Country: None (occurrence: None)
  Receive Date: 20050207
  Receipt Date: 20050127
  Transmission Date: 20050727
  Serious: Yes (Hospitalization)
  Sender: FDA-Public Use
  Company Number: 200510341FR

PATIENT
  Age: 83 Year
  Sex: Female
  Weight: 50 kg

DRUGS (6)
  1. AMAREL [Suspect]
     Indication: DIABETES MELLITUS
     Route: 048
     Dates: start: 19990927, end: 20041210
  2. DIAMICRON [Suspect]
     Indication: DIABETES MELLITUS
     Route: 048
     Dates: end: 20041210
  3. COVERSYL [Suspect]
     Indication: HYPERTENSION
     Route: 048
  4. KARDEGIC [Suspect]
     Indication: PROPHYLAXIS
     Route: 048
  5. CORDARONE [Concomitant]
     Indication: ARRHYTHMIA
     Route: 048
  6. VASTAREL [Concomitant]
     Route: 048

REACTIONS (5)
  - CEREBROVASCULAR ACCIDENT [None]
  - DRUG INTERACTION [None]
  - FACE INJURY [None]
  - FALL [None]
  - HYPOGLYCAEMIA [None]
